FAERS Safety Report 24279914 (Version 1)
Quarter: 2024Q3

REPORT INFORMATION
  Report Type: Spontaneous
  Country: ES (occurrence: ES)
  Receive Date: 20240904
  Receipt Date: 20240904
  Transmission Date: 20241017
  Serious: Yes (Hospitalization, Other)
  Sender: AUROBINDO
  Company Number: ES-HIKMA PHARMACEUTICALS-ES-H14001-24-07379

PATIENT
  Age: 79 Year
  Sex: Male
  Weight: 78 kg

DRUGS (6)
  1. IRINOTECAN [Suspect]
     Active Substance: IRINOTECAN
     Indication: Colorectal cancer
     Dosage: 357.3 MILLIGRAM (2 WEEKS)
     Route: 042
     Dates: start: 20240610, end: 20240617
  2. FLUOROURACIL [Suspect]
     Active Substance: FLUOROURACIL
     Indication: Colorectal cancer
     Dosage: 4764 MILLIGRAM (4764 MILLIGRAM, QOW, 5-FU INFUSION)
     Route: 042
     Dates: start: 20240610, end: 20240610
  3. FLUOROURACIL [Suspect]
     Active Substance: FLUOROURACIL
     Dosage: 794 MILLIGRAM (794 MILLIGRAM, QOW, BOLUS 5-FU, IV BOLUS)
     Route: 042
     Dates: start: 20240610, end: 20240617
  4. ENCORAFENIB [Suspect]
     Active Substance: ENCORAFENIB
     Indication: Colorectal cancer
     Dosage: 300 MILLIGRAM, ONCE A DAY (300 MILLIGRAM, QD)
     Route: 048
     Dates: start: 20240610, end: 20240617
  5. LEUCOVORIN [Suspect]
     Active Substance: LEUCOVORIN\LEUCOVORIN CALCIUM
     Indication: Colorectal cancer
     Dosage: 794 MILLIGRAM (794 MILLIGRAM, QOW)
     Route: 042
     Dates: start: 20240610, end: 20240617
  6. CETUXIMAB [Suspect]
     Active Substance: CETUXIMAB
     Indication: Colorectal cancer
     Dosage: 603 MILLIGRAM (603 MILLIGRAM, QOW)
     Route: 042
     Dates: start: 20240610, end: 20240617

REACTIONS (4)
  - Decreased appetite [Unknown]
  - Asthenia [Unknown]
  - Fatigue [Recovered/Resolved]
  - Febrile neutropenia [Recovered/Resolved]

NARRATIVE: CASE EVENT DATE: 20240618
